FAERS Safety Report 6207466-5 (Version None)
Quarter: 2009Q2

REPORT INFORMATION
  Report Type: 
  Country: None (occurrence: None)
  Receive Date: 20090528
  Receipt Date: 20090519
  Transmission Date: 20091009
  Serious: Yes (Other)
  Sender: FDA-Public Use
  Company Number: VE-PFIZER INC-2007031409

PATIENT
  Age: 79 Year

DRUGS (3)
  1. SUNITINIB MALATE [Suspect]
     Indication: RENAL CELL CARCINOMA
     Dosage: 50 MG, 1X/DAY, INTERVAL 28 DAYS
     Route: 048
     Dates: start: 20060814, end: 20070702
  2. LOSARTAN POTASSIUM [Concomitant]
     Route: 048
     Dates: start: 20000101
  3. AMLODIPINE [Concomitant]
     Route: 048
     Dates: start: 20061201

REACTIONS (6)
  - ANAEMIA [None]
  - ASCITES [None]
  - GENERALISED OEDEMA [None]
  - OEDEMA PERIPHERAL [None]
  - PLEURAL EFFUSION [None]
  - THROMBOCYTOPENIA [None]
